FAERS Safety Report 5887747-5 (Version None)
Quarter: 2008Q3

REPORT INFORMATION
  Report Type: 
  Country: None (occurrence: None)
  Receive Date: 20080918
  Receipt Date: 20080910
  Transmission Date: 20090109
  Serious: Yes (Hospitalization)
  Sender: FDA-Public Use
  Company Number: FR-WYE-H05799808

PATIENT
  Sex: Female

DRUGS (7)
  1. CORDARONE [Suspect]
     Route: 048
     Dates: start: 20060101, end: 20080601
  2. CORDARONE [Suspect]
     Route: 048
     Dates: start: 20080620, end: 20080803
  3. CORDARONE [Suspect]
     Route: 048
     Dates: start: 20080804, end: 20080805
  4. OFLOCET [Concomitant]
     Indication: ARTHRITIS BACTERIAL
     Route: 048
     Dates: start: 20080725
  5. LASIX [Concomitant]
     Dosage: DOSE AND FREQUENCY NOT SPECIFIED
     Route: 065
     Dates: start: 20060101, end: 20080601
  6. LASIX [Concomitant]
     Dosage: DOSE AND FREQUENCY NOT SPECIFIED
     Route: 065
     Dates: start: 20080728
  7. RIFADIN [Suspect]
     Indication: ARTHRITIS BACTERIAL
     Route: 048
     Dates: start: 20080725, end: 20080805

REACTIONS (2)
  - BLOOD BILIRUBIN INCREASED [None]
  - JAUNDICE [None]
